FAERS Safety Report 9929751 (Version 1)
Quarter: 2014Q1

REPORT INFORMATION
  Report Type: Spontaneous
  Country: US (occurrence: US)
  Receive Date: 20140227
  Receipt Date: 20140227
  Transmission Date: 20141002
  Serious: No
  Sender: FDA-Public Use
  Company Number: US-009507513-1402USA013251

PATIENT
  Sex: Male

DRUGS (2)
  1. CORICIDIN HBP COLD AND FLU [Suspect]
     Indication: NASOPHARYNGITIS
     Dosage: UNK UNK, UNKNOWN
     Route: 048
  2. CORICIDIN HBP COLD AND FLU [Suspect]
     Indication: INFLUENZA

REACTIONS (1)
  - Fatigue [Unknown]
